FAERS Safety Report 9870319 (Version 1)
Quarter: 2014Q1

REPORT INFORMATION
  Report Type: Spontaneous
  Country: US (occurrence: None)
  Receive Date: 20140204
  Receipt Date: 20140204
  Transmission Date: 20141002
  Serious: Yes (Other)
  Sender: FDA-Public Use
  Company Number: None

PATIENT
  Age: 12 Year
  Sex: Male
  Weight: 45.36 kg

DRUGS (1)
  1. METHYLPHENIDATE [Suspect]
     Dates: start: 20140130

REACTIONS (7)
  - Emotional disorder [None]
  - Feeling jittery [None]
  - Anxiety [None]
  - Memory impairment [None]
  - Palpitations [None]
  - Adverse drug reaction [None]
  - Product substitution issue [None]
